FAERS Safety Report 4431780-7 (Version None)
Quarter: 2004Q3

REPORT INFORMATION
  Report Type: 
  Country: None (occurrence: None)
  Receive Date: 20040825
  Receipt Date: 20040812
  Transmission Date: 20050211
  Serious: Yes (Other)
  Sender: FDA-Public Use
  Company Number: ES-JNJFOC-20040803946

PATIENT
  Age: 47 Year
  Sex: Female

DRUGS (5)
  1. ADOLONTA [Suspect]
     Indication: DRUG USE FOR UNKNOWN INDICATION
     Route: 049
  2. GELOCATIL [Concomitant]
  3. PRISDAL [Concomitant]
  4. TETRAZEPAM [Concomitant]
  5. VENORUTON [Concomitant]

REACTIONS (1)
  - BLINDNESS TRANSIENT [None]
